FAERS Safety Report 8539580-3 (Version None)
Quarter: 2012Q3

REPORT INFORMATION
  Report Type: 
  Country: None (occurrence: None)
  Receive Date: 20120726
  Receipt Date: 20120712
  Transmission Date: 20120928
  Serious: Yes (Hospitalization)
  Sender: FDA-Public Use
  Company Number: DE-ELI_LILLY_AND_COMPANY-DE201206009021

PATIENT
  Age: 29 Year
  Sex: Female

DRUGS (3)
  1. ZYPREXA [Suspect]
     Dosage: 15 MG, QD
     Route: 048
     Dates: start: 20120601
  2. ZYPREXA [Suspect]
     Indication: SLEEP DISORDER
     Dosage: 15 MG, QD
     Route: 048
     Dates: start: 20040101
  3. PANTOPRAZOLE [Concomitant]
     Dosage: 40 MG, UNK

REACTIONS (4)
  - OFF LABEL USE [None]
  - CHILLS [None]
  - IRRITABLE BOWEL SYNDROME [None]
  - ABDOMINAL DISCOMFORT [None]
